FAERS Safety Report 15080100 (Version 2)
Quarter: 2018Q3

REPORT INFORMATION
  Report Type: Spontaneous
  Country: AU (occurrence: AU)
  Receive Date: 20180627
  Receipt Date: 20180803
  Transmission Date: 20181010
  Serious: Yes (Other)
  Sender: FDA-Public Use
  Company Number: PHHY2018AU023559

PATIENT
  Sex: Female

DRUGS (1)
  1. SYSTANE (HYPROMELLOSE 2910 (4000 MPA.S)) [Suspect]
     Active Substance: HYPROMELLOSE 2910 (4000 MPA.S)
     Indication: PRODUCT USED FOR UNKNOWN INDICATION
     Route: 047

REACTIONS (7)
  - Blindness [Unknown]
  - Eye pain [Unknown]
  - Visual impairment [Unknown]
  - Ocular hyperaemia [Unknown]
  - Eye inflammation [Recovered/Resolved]
  - Product quality issue [Unknown]
  - Eye irritation [Unknown]
